FAERS Safety Report 5872730-6 (Version None)
Quarter: 2008Q3

REPORT INFORMATION
  Report Type: 
  Country: None (occurrence: None)
  Receive Date: 20080902
  Receipt Date: 20060113
  Transmission Date: 20090109
  Serious: Yes (Other)
  Sender: FDA-Public Use
  Company Number: 2008AL009340

PATIENT
  Age: 51 Year
  Sex: Male

DRUGS (9)
  1. MIRTAZAPINE [Suspect]
     Indication: DEPRESSION
     Dosage: 30 MG; QD; PO
     Route: 048
     Dates: start: 20050701, end: 20060101
  2. LANSOPRAZOLE [Concomitant]
  3. TAXOTERE [Concomitant]
  4. ACETAMINOPHEN [Concomitant]
  5. MYCOSTATIN [Concomitant]
  6. SODIUM PICOSULFATE [Concomitant]
  7. OXACAND [Concomitant]
  8. DOLCONTIN [Concomitant]
  9. DIAZEPAM [Concomitant]

REACTIONS (2)
  - EOSINOPHILIA [None]
  - WHITE BLOOD CELL COUNT INCREASED [None]
